FAERS Safety Report 8620776-7 (Version None)
Quarter: 2012Q3

REPORT INFORMATION
  Report Type: 
  Country: None (occurrence: None)
  Receive Date: 20120824
  Receipt Date: 20111010
  Transmission Date: 20120928
  Serious: Yes (Hospitalization)
  Sender: FDA-Public Use
  Company Number: CN-ROCHE-1003499

PATIENT
  Sex: Female

DRUGS (3)
  1. MYCOPHENOLATE MOFETIL (CELLCEPT) [Suspect]
     Indication: RENAL TRANSPLANT
     Route: 048
     Dates: start: 20070101
  2. CYCLOSPORINE [Concomitant]
     Indication: RENAL TRANSPLANT
  3. STEROID NOS [Concomitant]
     Indication: RENAL TRANSPLANT

REACTIONS (1)
  - KIDNEY TRANSPLANT REJECTION [None]
